FAERS Safety Report 8608014-2 (Version None)
Quarter: 2012Q3

REPORT INFORMATION
  Report Type: 
  Country: None (occurrence: None)
  Receive Date: 20120809
  Receipt Date: 20120809
  Transmission Date: 20120928
  Serious: Yes (Life-Threatening, Hospitalization)
  Sender: FDA-Public Use
  Company Number: None

PATIENT
  Sex: Male
  Weight: 74 kg

DRUGS (1)
  1. NEXAVAR [Suspect]
     Indication: HEPATIC NEOPLASM MALIGNANT
     Dosage: 400 MG BID PO
     Route: 048
     Dates: start: 20120608, end: 20120706

REACTIONS (6)
  - AMMONIA INCREASED [None]
  - HYPOPHAGIA [None]
  - ABASIA [None]
  - APHASIA [None]
  - THINKING ABNORMAL [None]
  - BLOOD BILIRUBIN INCREASED [None]
